FAERS Safety Report 12280854 (Version 1)
Quarter: 2016Q2

REPORT INFORMATION
  Report Type: Spontaneous
  Country: SE (occurrence: SE)
  Receive Date: 20160419
  Receipt Date: 20160419
  Transmission Date: 20160815
  Serious: Yes (Hospitalization, Other)
  Sender: FDA-Public Use
  Company Number: SE-AUROBINDO-AUR-APL-2016-04873

PATIENT

DRUGS (1)
  1. ALENDRONIC ACID AUROBINDO TABLET [Suspect]
     Active Substance: ALENDRONIC ACID
     Indication: PRODUCT USED FOR UNKNOWN INDICATION
     Dosage: 70 MG, UNK
     Route: 048

REACTIONS (4)
  - Femur fracture [Unknown]
  - Drug effect incomplete [Unknown]
  - Intervertebral disc compression [Unknown]
  - Wrist fracture [Unknown]
